FAERS Safety Report 16941510 (Version 2)
Quarter: 2020Q4

REPORT INFORMATION
  Report Type: Spontaneous
  Country: GB (occurrence: GB)
  Receive Date: 20191021
  Receipt Date: 20201014
  Transmission Date: 20210113
  Serious: Yes (Life-Threatening, Hospitalization)
  Sender: FDA-Public Use
  Company Number: GB-MYLANLABS-2019M1098653

PATIENT
  Age: 47 Year
  Sex: Female

DRUGS (1)
  1. LEVONORGESTREL. [Suspect]
     Active Substance: LEVONORGESTREL
     Indication: PRODUCT USED FOR UNKNOWN INDICATION
     Dosage: INTRAUTERINE DELIVERY SYSTEM
     Route: 015

REACTIONS (8)
  - Uterine inversion [Recovered/Resolved]
  - Pregnancy with contraceptive device [Not Recovered/Not Resolved]
  - Uterine haemorrhage [Recovered/Resolved]
  - Hypovolaemic shock [Unknown]
  - Retroperitonitis [Not Recovered/Not Resolved]
  - Uterine leiomyoma [Recovered/Resolved]
  - Abdominal pain [Recovered/Resolved]
  - Maternal exposure during pregnancy [Recovered/Resolved]
